FAERS Safety Report 6385678-8 (Version None)
Quarter: 2009Q4

REPORT INFORMATION
  Report Type: 
  Country: None (occurrence: None)
  Receive Date: 20091002
  Receipt Date: 20081024
  Transmission Date: 20100525
  Serious: No
  Sender: FDA-Public Use
  Company Number: US-ASTRAZENECA-2008UW23855

PATIENT
  Age: 71 Year
  Sex: Female
  Weight: 90.7 kg

DRUGS (8)
  1. ARIMIDEX [Suspect]
     Indication: BREAST CANCER
     Dosage: UNKNOWN
     Route: 048
     Dates: start: 20070501
  2. DIOVAN [Concomitant]
  3. LEXAPRO [Concomitant]
  4. METOPROLOL [Concomitant]
  5. ZETIA [Concomitant]
  6. CRESTOR [Concomitant]
     Route: 048
  7. CALCIUM [Concomitant]
  8. VITAMINS [Concomitant]

REACTIONS (8)
  - ARTHRALGIA [None]
  - BLOOD CHOLESTEROL INCREASED [None]
  - BONE PAIN [None]
  - BURSITIS [None]
  - FATIGUE [None]
  - HEADACHE [None]
  - HOT FLUSH [None]
  - URINARY TRACT INFECTION [None]
